FAERS Safety Report 8918840 (Version 1)
Quarter: 2012Q4

REPORT INFORMATION
  Report Type: Spontaneous
  Country: US (occurrence: None)
  Receive Date: 20121115
  Receipt Date: 20121115
  Transmission Date: 20130627
  Serious: Yes (Hospitalization)
  Sender: FDA-Public Use
  Company Number: None

PATIENT
  Age: 32 Year
  Sex: Female

DRUGS (3)
  1. CEFTAROLINE [Suspect]
     Indication: INFECTION MRSA
     Dates: start: 20120918, end: 20121029
  2. CEFTAROLINE [Suspect]
     Indication: BACTEREMIA
     Dates: start: 20120918, end: 20121029
  3. CEFTAROLINE [Suspect]
     Indication: OSTEOMYELITIS
     Dates: start: 20120918, end: 20121029

REACTIONS (2)
  - Neutropenia [None]
  - White blood cell count decreased [None]
